FAERS Safety Report 9844735 (Version 1)
Quarter: 2014Q1

REPORT INFORMATION
  Report Type: Report from Study
  Country: US (occurrence: US)
  Receive Date: 20140127
  Receipt Date: 20140127
  Transmission Date: 20141002
  Serious: Yes (Life-Threatening)
  Sender: FDA-Public Use
  Company Number: US-ROCHE-1336902

PATIENT
  Sex: Female
  Weight: 47.67 kg

DRUGS (1)
  1. HERCEPTIN [Suspect]
     Indication: SALIVARY GLAND CANCER
     Route: 065

REACTIONS (3)
  - Metastases to neck [Not Recovered/Not Resolved]
  - Angina pectoris [Not Recovered/Not Resolved]
  - Haemoglobin decreased [Not Recovered/Not Resolved]
